FAERS Safety Report 25634836 (Version 1)
Quarter: 2025Q3

REPORT INFORMATION
  Report Type: Report from Study
  Country: US (occurrence: US)
  Receive Date: 20250801
  Receipt Date: 20250801
  Transmission Date: 20251020
  Serious: Yes (Other)
  Sender: ASTELLAS
  Company Number: US-ASTELLAS-2025-AER-027981

PATIENT
  Sex: Male

DRUGS (2)
  1. ENZALUTAMIDE [Suspect]
     Active Substance: ENZALUTAMIDE
     Indication: Hormone-dependent prostate cancer
     Route: 048
  2. ENZALUTAMIDE [Suspect]
     Active Substance: ENZALUTAMIDE
     Route: 048
     Dates: start: 20240924

REACTIONS (7)
  - Arrhythmia [Unknown]
  - Cognitive disorder [Unknown]
  - Lethargy [Unknown]
  - Irritability [Unknown]
  - Condition aggravated [Unknown]
  - Mood altered [Unknown]
  - Blood pressure fluctuation [Unknown]
